FAERS Safety Report 12605962 (Version 1)
Quarter: 2016Q3

REPORT INFORMATION
  Report Type: Spontaneous
  Country: US (occurrence: None)
  Receive Date: 20160728
  Receipt Date: 20160728
  Transmission Date: 20161109
  Serious: Yes (Disabling)
  Sender: FDA-Public Use
  Company Number: None

PATIENT
  Age: 60 Year
  Sex: Female

DRUGS (16)
  1. AMITRIPTYLINE [Concomitant]
     Active Substance: AMITRIPTYLINE
  2. OPANA ER [Concomitant]
     Active Substance: OXYMORPHONE HYDROCHLORIDE
  3. VAGI-FEM [Concomitant]
  4. PREDNISONE. [Concomitant]
     Active Substance: PREDNISONE
  5. CANASA SUPP [Concomitant]
  6. CLONAZEPAM. [Concomitant]
     Active Substance: CLONAZEPAM
  7. BENICAR [Concomitant]
     Active Substance: OLMESARTAN MEDOXOMIL
  8. NASOCORT AQUA [Concomitant]
  9. LEVAQUIN [Suspect]
     Active Substance: LEVOFLOXACIN
     Indication: STAPHYLOCOCCAL INFECTION
     Route: 048
     Dates: start: 20150822, end: 20150824
  10. CODEINE SULFATE. [Concomitant]
     Active Substance: CODEINE SULFATE
  11. PROZAC [Concomitant]
     Active Substance: FLUOXETINE HYDROCHLORIDE
  12. ZANTAC [Suspect]
     Active Substance: RANITIDINE HYDROCHLORIDE
  13. CALCIUM/VIT D [Concomitant]
  14. DULERA [Concomitant]
     Active Substance: FORMOTEROL FUMARATE DIHYDRATE\MOMETASONE FUROATE
  15. XALATAN [Concomitant]
     Active Substance: LATANOPROST
  16. FORTEO [Concomitant]
     Active Substance: TERIPARATIDE

REACTIONS (14)
  - Tendon rupture [None]
  - Nerve injury [None]
  - Dyspnoea [None]
  - Alopecia [None]
  - Gait disturbance [None]
  - Tendon pain [None]
  - Balance disorder [None]
  - Internal haemorrhage [None]
  - Quality of life decreased [None]
  - Deep vein thrombosis [None]
  - Anaemia [None]
  - Neuropathy peripheral [None]
  - Nightmare [None]
  - Musculoskeletal stiffness [None]

NARRATIVE: CASE EVENT DATE: 20150826
